FAERS Safety Report 9511431 (Version 1)
Quarter: 2013Q3

REPORT INFORMATION
  Report Type: Spontaneous
  Country: US (occurrence: None)
  Receive Date: 20130909
  Receipt Date: 20130909
  Transmission Date: 20140515
  Serious: Yes (Other)
  Sender: FDA-Public Use
  Company Number: None

PATIENT
  Age: 66 Year
  Sex: Female
  Weight: 90.72 kg

DRUGS (2)
  1. XERALTO [Suspect]
     Indication: DEEP VEIN THROMBOSIS
     Dosage: 1 ONCE DAILY TAKEN DAILY
     Route: 048
     Dates: start: 20130204, end: 20130830
  2. ALLERMAX [Concomitant]

REACTIONS (2)
  - Disturbance in attention [None]
  - Vision blurred [None]
